FAERS Safety Report 18590716 (Version 1)
Quarter: 2020Q4

REPORT INFORMATION
  Report Type: Spontaneous
  Country: US (occurrence: US)
  Receive Date: 20201208
  Receipt Date: 20201208
  Transmission Date: 20210114
  Serious: Yes (Death, Other)
  Sender: FDA-Public Use
  Company Number: US-BRISTOL-MYERS SQUIBB COMPANY-BMS-2020-104047

PATIENT
  Sex: Male

DRUGS (2)
  1. YERVOY [Suspect]
     Active Substance: IPILIMUMAB
     Indication: TONSIL CANCER
     Dosage: 66 MILLIGRAM, Q6WK
     Route: 042
  2. OPDIVO [Suspect]
     Active Substance: NIVOLUMAB
     Indication: TONSIL CANCER
     Dosage: 198 MILLIGRAM, Q2WK
     Route: 042

REACTIONS (2)
  - Intentional product use issue [Unknown]
  - Death [Fatal]
